FAERS Safety Report 21053375 (Version 1)
Quarter: 2022Q3

REPORT INFORMATION
  Report Type: Report from Study
  Country: BE (occurrence: BE)
  Receive Date: 20220707
  Receipt Date: 20220707
  Transmission Date: 20221026
  Serious: Yes (Hospitalization, Other)
  Sender: FDA-Public Use
  Company Number: BE-ROCHE-2943249

PATIENT
  Age: 76 Year
  Sex: Male
  Weight: 91.8 kg

DRUGS (48)
  1. ETOPOSIDE [Suspect]
     Active Substance: ETOPOSIDE
     Indication: Small cell lung cancer extensive stage
     Dosage: UNIT DOSE: 112 MG
     Route: 065
     Dates: start: 20210630
  2. ETOPOSIDE [Suspect]
     Active Substance: ETOPOSIDE
     Dosage: UNIT DOSE: 312 MG
     Route: 065
     Dates: start: 20210722
  3. CARBOPLATIN [Suspect]
     Active Substance: CARBOPLATIN
     Indication: Small cell lung cancer extensive stage
     Dosage: UNIT DOSE: 670MG
     Route: 065
     Dates: start: 20210722
  4. CARBOPLATIN [Suspect]
     Active Substance: CARBOPLATIN
     Dosage: UNIT DOSE: 880MG
     Route: 065
     Dates: start: 20210630
  5. ATEZOLIZUMAB [Suspect]
     Active Substance: ATEZOLIZUMAB
     Indication: Small cell lung cancer extensive stage
     Dosage: VISIT 1, UNIT DOSE: 1200MG
     Route: 041
     Dates: start: 20210722
  6. ATEZOLIZUMAB [Suspect]
     Active Substance: ATEZOLIZUMAB
     Dosage: UNIT DOSE: 1200MG
     Route: 042
     Dates: start: 20210630
  7. ETOPOSIDE [Concomitant]
     Active Substance: ETOPOSIDE
     Indication: Product used for unknown indication
  8. CARBOPLATIN [Concomitant]
     Active Substance: CARBOPLATIN
     Indication: Neoplasm malignant
  9. ENOXAPARIN SODIUM [Concomitant]
     Active Substance: ENOXAPARIN SODIUM
     Indication: Cardiovascular event prophylaxis
     Dosage: FREQUENCY TIME: 1 DAYS, DURATION: 3 DAYS
     Dates: start: 20210719, end: 20210721
  10. ENOXAPARIN SODIUM [Concomitant]
     Active Substance: ENOXAPARIN SODIUM
     Dosage: FREQUENCY TIME: 1 DAYS, DURATION: 2 DAYS
     Dates: start: 20210704, end: 20210705
  11. ENOXAPARIN SODIUM [Concomitant]
     Active Substance: ENOXAPARIN SODIUM
     Dosage: FREQUENCY TIME: 1 DAYS, DURATION: 6 DAYS
     Dates: start: 20210707, end: 20210712
  12. ENOXAPARIN SODIUM [Concomitant]
     Active Substance: ENOXAPARIN SODIUM
     Dosage: FREQUENCY TIME: 0.5 DAYS, DURATION: 10 DAYS
     Dates: start: 20210624, end: 20210703
  13. NETUPITANT [Concomitant]
     Active Substance: NETUPITANT
     Indication: Product used for unknown indication
     Dosage: UNIT DOSE: 300MG, DURATION: 1 DAYS
     Dates: start: 20210811, end: 20210811
  14. NETUPITANT [Concomitant]
     Active Substance: NETUPITANT
     Dosage: UNIT DOSE: 300MG, DURATION: 1 DAYS
     Dates: start: 20210630, end: 20210630
  15. NETUPITANT [Concomitant]
     Active Substance: NETUPITANT
     Dosage: UNIT DOSE: 300MG, DURATION: 1 DAYS
     Dates: start: 20210722, end: 20210722
  16. LIPEGFILGRASTIM [Concomitant]
     Active Substance: LIPEGFILGRASTIM
     Indication: Product used for unknown indication
     Dosage: DURATION: 1 DAYS
     Dates: start: 20210716, end: 20210716
  17. LIPEGFILGRASTIM [Concomitant]
     Active Substance: LIPEGFILGRASTIM
     Dosage: DURATION: 1 DAYS
     Dates: start: 20210814, end: 20210814
  18. LIPEGFILGRASTIM [Concomitant]
     Active Substance: LIPEGFILGRASTIM
     Dosage: FREQUENCY TIME: 1 DAYS, DURATION: 1 DAYS
     Dates: start: 20210814, end: 20210814
  19. OXYGEN [Concomitant]
     Active Substance: OXYGEN
     Indication: Product used for unknown indication
     Dates: start: 202106
  20. MORPHINE [Concomitant]
     Active Substance: MORPHINE
     Indication: Adverse event
     Dosage: FREQUENCY TIME: 0.5 DAYS, DURATION: 1 DAYS
     Dates: start: 20210705, end: 20210705
  21. JARDIANCE [Concomitant]
     Active Substance: EMPAGLIFLOZIN
     Indication: Product used for unknown indication
     Dosage: FREQUENCY TIME: 1 DAYS
     Dates: start: 20180627
  22. METFORMIN [Concomitant]
     Active Substance: METFORMIN HYDROCHLORIDE
     Indication: Product used for unknown indication
     Dosage: FREQUENCY TIME: 0.33 DAYS
     Dates: start: 20210810
  23. METFORMIN [Concomitant]
     Active Substance: METFORMIN HYDROCHLORIDE
     Dosage: FREQUENCY TIME: 0.33 DAYS
     Dates: start: 20210712
  24. PRAZEPAM [Concomitant]
     Active Substance: PRAZEPAM
     Indication: Product used for unknown indication
     Dates: start: 20210811
  25. ATROVENT [Concomitant]
     Active Substance: IPRATROPIUM BROMIDE
     Indication: Product used for unknown indication
     Dosage: FREQUENCY TIME: 0.25 DAYS
     Dates: start: 20210623
  26. FOLIC ACID [Concomitant]
     Active Substance: FOLIC ACID
     Indication: Prophylaxis
     Dosage: FREQUENCY TIME: 1 DAYS
     Dates: start: 20210629
  27. FENTANYL [Concomitant]
     Active Substance: FENTANYL
     Indication: Sedation
     Dosage: FREQUENCY TIME: 1 DAYS
     Dates: start: 20210808
  28. POTASSIUM CHLORIDE [Concomitant]
     Active Substance: POTASSIUM CHLORIDE
     Indication: Product used for unknown indication
     Dosage: KALIUM [POTASSIUM CHLORIDE]
  29. STEROP K [Concomitant]
     Indication: Adverse event
     Dosage: FREQUENCY TIME: 1 DAYS, DURATION: 1 DAYS
     Dates: start: 20210707, end: 20210707
  30. STEROP K [Concomitant]
     Dosage: DURATION: 2 DAYS
     Dates: start: 20210717, end: 20210718
  31. STEROP K [Concomitant]
     Dosage: FREQUENCY TIME: 1 DAYS
     Dates: start: 20210718
  32. PIPERACILLIN SODIUM\TAZOBACTAM SODIUM [Concomitant]
     Active Substance: PIPERACILLIN SODIUM\TAZOBACTAM SODIUM
     Indication: Product used for unknown indication
     Dosage: DURATION: 8 DAYS
     Dates: start: 20210713, end: 20210720
  33. PIPERACILLIN SODIUM\TAZOBACTAM SODIUM [Concomitant]
     Active Substance: PIPERACILLIN SODIUM\TAZOBACTAM SODIUM
     Dosage: DURATION: 1 DAYS
     Dates: start: 20210712, end: 20210712
  34. SPIRONOLACTONE [Concomitant]
     Active Substance: SPIRONOLACTONE
     Indication: Product used for unknown indication
     Dosage: FREQUENCY TIME: 1 DAYS
     Dates: start: 20210701
  35. ACETYLCYSTEINE [Concomitant]
     Active Substance: ACETYLCYSTEINE
     Indication: Product used for unknown indication
     Dosage: FREQUENCY TIME: 0.5 DAYS
     Dates: start: 20210623
  36. BUMETANIDE [Concomitant]
     Active Substance: BUMETANIDE
     Indication: Product used for unknown indication
     Dosage: FREQUENCY TIME: 1 DAYS, DURATION: 9 DAYS
     Dates: start: 20210707, end: 20210715
  37. BUMETANIDE [Concomitant]
     Active Substance: BUMETANIDE
     Dosage: FREQUENCY TIME: 1 DAYS, DURATION: 4 DAYS
     Dates: start: 20210723, end: 20210726
  38. BUMETANIDE [Concomitant]
     Active Substance: BUMETANIDE
     Dosage: FREQUENCY TIME: 1 DAYS, DURATION: 6 DAYS
     Dates: start: 20210701, end: 20210706
  39. ACTRAPID [Concomitant]
     Active Substance: INSULIN HUMAN
     Indication: Product used for unknown indication
     Dosage: FREQUENCY TIME: 0.25 DAYS
     Dates: start: 20210618
  40. DEXAMETHASONE [Concomitant]
     Active Substance: DEXAMETHASONE
     Indication: Product used for unknown indication
     Dosage: UNIT DOSE: 10 MG, DURATION: 1 DAYS
     Dates: start: 20210630, end: 20210630
  41. DEXAMETHASONE [Concomitant]
     Active Substance: DEXAMETHASONE
     Dosage: UNIT DOSE: 10 MG, DURATION: 1 DAYS
     Dates: start: 20210722, end: 20210722
  42. DEXAMETHASONE [Concomitant]
     Active Substance: DEXAMETHASONE
     Dosage: UNIT DOSE: 10 MG, DURATION: 31 DAYS
     Dates: start: 20210630, end: 20210730
  43. DEXAMETHASONE [Concomitant]
     Active Substance: DEXAMETHASONE
     Dosage: UNIT DOSE: 10 MG, DURATION: 1 DAYS
     Dates: start: 20210811, end: 20210811
  44. PALONOSETRON [Concomitant]
     Active Substance: PALONOSETRON
     Indication: Product used for unknown indication
     Dosage: UNIT DOSE: 0.5MG, DURATION: 1 DAYS
     Dates: start: 20210630, end: 20210630
  45. PALONOSETRON [Concomitant]
     Active Substance: PALONOSETRON
     Dosage: UNIT DOSE: 0.5MG, DURATION: 1 DAYS
     Dates: start: 20210722, end: 20210722
  46. PALONOSETRON [Concomitant]
     Active Substance: PALONOSETRON
     Dosage: UNIT DOSE: 0.5MG, DURATION: 1 DAYS
     Dates: start: 20210811, end: 20210811
  47. XANAX [Concomitant]
     Active Substance: ALPRAZOLAM
     Indication: Sedation
     Dosage: FREQUENCY TIME: 1 DAYS
     Dates: start: 202108
  48. STEOVIT FORTE [Concomitant]
     Indication: Prophylaxis
     Dosage: FREQUENCY TIME: 1 DAYS
     Dates: start: 20210618

REACTIONS (24)
  - Thrombocytopenia [Recovered/Resolved]
  - Neutrophil count decreased [Recovered/Resolved]
  - Epistaxis [Recovered/Resolved]
  - Hypokalaemia [Recovered/Resolved]
  - Weight decreased [Recovered/Resolved]
  - Diarrhoea [Recovered/Resolved]
  - Nasal congestion [Recovered/Resolved]
  - C-reactive protein increased [Recovered/Resolved]
  - Nausea [Recovered/Resolved]
  - Chest pain [Recovered/Resolved]
  - Anaemia [Not Recovered/Not Resolved]
  - Decreased appetite [Not Recovered/Not Resolved]
  - Asthenia [Recovered/Resolved]
  - Oedema peripheral [Recovered/Resolved]
  - Stasis dermatitis [Recovered/Resolved]
  - Blood alkaline phosphatase increased [Recovered/Resolved]
  - Abdominal pain [Recovered/Resolved]
  - Productive cough [Recovered/Resolved]
  - Haematuria [Recovered/Resolved]
  - Aspartate aminotransferase increased [Recovered/Resolved]
  - Hypomagnesaemia [Recovered/Resolved]
  - Haemoptysis [Recovered/Resolved]
  - Blood bilirubin increased [Recovered/Resolved]
  - Decreased appetite [Not Recovered/Not Resolved]

NARRATIVE: CASE EVENT DATE: 20210701
